FAERS Safety Report 6297168-1 (Version None)
Quarter: 2009Q3

REPORT INFORMATION
  Report Type: 
  Country: None (occurrence: None)
  Receive Date: 20090805
  Receipt Date: 20070706
  Transmission Date: 20100115
  Serious: Yes (Other)
  Sender: FDA-Public Use
  Company Number: US-ASTRAZENECA-2006UW27781

PATIENT
  Age: 344 Month
  Sex: Female
  Weight: 99.3 kg

DRUGS (17)
  1. SEROQUEL [Suspect]
     Indication: DEPRESSION
     Route: 048
     Dates: start: 20030101, end: 20050801
  2. SEROQUEL [Suspect]
     Route: 048
     Dates: start: 20050113
  3. RISPERDAL [Concomitant]
     Dates: start: 20040801
  4. RISPERDAL [Concomitant]
     Route: 048
     Dates: start: 20040809
  5. DEXATRIM [Concomitant]
     Dates: start: 20061101, end: 20061201
  6. DARVOCET [Concomitant]
     Dosage: AS PER NECESSARY
     Route: 048
     Dates: start: 20050402
  7. TRAZODONE HCL [Concomitant]
     Route: 048
     Dates: start: 20050725
  8. EFFEXOR [Concomitant]
     Route: 048
     Dates: start: 20051021
  9. HYDROCHLOROTHIAZIDE [Concomitant]
     Route: 048
     Dates: start: 20031013
  10. LEXAPRO [Concomitant]
     Route: 048
     Dates: start: 20040621
  11. ZOCOR [Concomitant]
     Route: 048
     Dates: start: 20040315
  12. XANAX [Concomitant]
     Route: 048
     Dates: start: 20031230
  13. AVANDIA [Concomitant]
     Route: 048
     Dates: start: 20050501
  14. PREDNISONE [Concomitant]
     Route: 048
     Dates: start: 20050214
  15. PRILOSEC [Concomitant]
     Route: 048
  16. DIFLUCAN [Concomitant]
     Route: 048
     Dates: start: 20040117
  17. NEURONTIN [Concomitant]
     Route: 048
     Dates: start: 20050728

REACTIONS (11)
  - BACK PAIN [None]
  - BLOOD CHOLESTEROL INCREASED [None]
  - BLOOD TRIGLYCERIDES INCREASED [None]
  - CARDIAC DISORDER [None]
  - CELLULITIS [None]
  - DIABETES MELLITUS [None]
  - DIABETES MELLITUS INADEQUATE CONTROL [None]
  - HYPERGLYCAEMIA [None]
  - HYPERLIPIDAEMIA [None]
  - OBESITY [None]
  - TYPE 2 DIABETES MELLITUS [None]
